FAERS Safety Report 18596391 (Version 1)
Quarter: 2020Q4

REPORT INFORMATION
  Report Type: Report from Study
  Country: GB (occurrence: GB)
  Receive Date: 20201209
  Receipt Date: 20201209
  Transmission Date: 20210114
  Serious: Yes (Death, Other)
  Sender: FDA-Public Use
  Company Number: GB-B.I. PHARMACEUTICALS,INC./RIDGEFIELD-2012-BP-16402GE

PATIENT

DRUGS (5)
  1. DIPYRIDAMOLE. [Suspect]
     Active Substance: DIPYRIDAMOLE
     Indication: ISCHAEMIC STROKE
     Route: 065
  2. ACTILYSE [Suspect]
     Active Substance: ALTEPLASE
     Dosage: 10% BOLUS WITH THE REMAINDER OVER 1 H FREQUENCY: 1, FREQUENCY UNIT: 809
     Route: 042
  3. CLOPIDOGREL [Suspect]
     Active Substance: CLOPIDOGREL BISULFATE
     Indication: ISCHAEMIC STROKE
     Route: 065
  4. ACTILYSE [Suspect]
     Active Substance: ALTEPLASE
     Indication: ISCHAEMIC STROKE
     Dosage: DOSE: 0.9 MG/KG FREQUENCY: 1, FREQUENCY UNIT: 809
     Route: 042
  5. ASPIRIN. [Suspect]
     Active Substance: ASPIRIN
     Indication: ISCHAEMIC STROKE
     Route: 065

REACTIONS (7)
  - Haemorrhage intracranial [Fatal]
  - Cerebral infarction [Fatal]
  - Hypersensitivity [Unknown]
  - Cerebrovascular accident [Fatal]
  - Brain oedema [Fatal]
  - Haemorrhage [Fatal]
  - Drug interaction [Unknown]
